FAERS Safety Report 20688862 (Version 3)
Quarter: 2022Q4

REPORT INFORMATION
  Report Type: Spontaneous
  Country: US (occurrence: US)
  Receive Date: 20220408
  Receipt Date: 20221025
  Transmission Date: 20230113
  Serious: No
  Sender: FDA-Public Use
  Company Number: US-BRISTOL-MYERS SQUIBB COMPANY-2022-014676

PATIENT
  Age: 58 Year
  Sex: Male
  Weight: 75.75 kg

DRUGS (1)
  1. POMALYST [Suspect]
     Active Substance: POMALIDOMIDE
     Indication: Plasma cell myeloma
     Dosage: 3MG ORAL , 3 WEEK ON 1 WEEK OFF
     Route: 048
     Dates: start: 20220301

REACTIONS (4)
  - White blood cell disorder [Unknown]
  - Insomnia [Unknown]
  - Intentional underdose [Unknown]
  - Limb discomfort [Recovering/Resolving]
